FAERS Safety Report 20329977 (Version 1)
Quarter: 2022Q1

REPORT INFORMATION
  Report Type: Spontaneous
  Country: FR (occurrence: FR)
  Receive Date: 20220113
  Receipt Date: 20220113
  Transmission Date: 20220423
  Serious: Yes (Hospitalization)
  Sender: FDA-Public Use
  Company Number: FR-AFSSAPS-CF20213113

PATIENT
  Age: 92 Year
  Sex: Female

DRUGS (2)
  1. NOREPINEPHRINE [Suspect]
     Active Substance: NOREPINEPHRINE
     Indication: Product used for unknown indication
     Dosage: 16 MILLIGRAM, UNK, ADMINISTERED
     Route: 042
     Dates: start: 20211125, end: 20211125
  2. TRANEXAMIC ACID [Concomitant]
     Active Substance: TRANEXAMIC ACID
     Indication: Product used for unknown indication
     Dosage: NOT ADMINISTERED ()
     Route: 065

REACTIONS (5)
  - Wrong product administered [Recovered/Resolved]
  - Stress cardiomyopathy [Recovered/Resolved]
  - Ventricular fibrillation [Recovered/Resolved]
  - Chest pain [Recovered/Resolved]
  - Product packaging confusion [Recovered/Resolved]

NARRATIVE: CASE EVENT DATE: 20211125
